FAERS Safety Report 7056044-7 (Version None)
Quarter: 2010Q4

REPORT INFORMATION
  Report Type: 
  Country: None (occurrence: None)
  Receive Date: 20101021
  Receipt Date: 20101012
  Transmission Date: 20110411
  Serious: Yes (Hospitalization)
  Sender: FDA-Public Use
  Company Number: B0678931A

PATIENT
  Sex: Male

DRUGS (1)
  1. ZENTEL [Suspect]
     Indication: HELMINTHIC INFECTION
     Dosage: 800MG PER DAY
     Route: 048
     Dates: start: 20100425, end: 20100518

REACTIONS (1)
  - PANCYTOPENIA [None]
